FAERS Safety Report 11347439 (Version 1)
Quarter: 2015Q3

REPORT INFORMATION
  Report Type: Spontaneous
  Country: US (occurrence: US)
  Receive Date: 20150803
  Receipt Date: 20150803
  Transmission Date: 20151125
  Serious: Yes (Other)
  Sender: FDA-Public Use
  Company Number: US-ELI_LILLY_AND_COMPANY-US201107001716

PATIENT
  Age: 29 Year
  Sex: Female

DRUGS (6)
  1. ZYPREXA [Suspect]
     Active Substance: OLANZAPINE
     Dosage: 30 MG, QD
  2. DEPAKOTE [Concomitant]
     Active Substance: DIVALPROEX SODIUM
  3. INVEGA [Concomitant]
     Active Substance: PALIPERIDONE
     Dosage: UNK, UNKNOWN
  4. ZYPREXA [Suspect]
     Active Substance: OLANZAPINE
     Indication: SCHIZOPHRENIA
     Dosage: 20 MG, QD
  5. TOPAMAX [Concomitant]
     Active Substance: TOPIRAMATE
  6. INVEGA [Concomitant]
     Active Substance: PALIPERIDONE
     Dosage: UNK, UNKNOWN

REACTIONS (6)
  - Hallucination, auditory [Unknown]
  - Weight increased [Unknown]
  - Increased appetite [Unknown]
  - Alopecia [Unknown]
  - Prescribed overdose [Unknown]
  - Somnolence [Not Recovered/Not Resolved]
